FAERS Safety Report 20880480 (Version 1)
Quarter: 2022Q2

REPORT INFORMATION
  Report Type: Spontaneous
  Country: MD (occurrence: MD)
  Receive Date: 20220526
  Receipt Date: 20220526
  Transmission Date: 20220721
  Serious: Yes (Hospitalization, Other)
  Sender: FDA-Public Use
  Company Number: MD-ALLERGAN-2217150US

PATIENT
  Sex: Female

DRUGS (1)
  1. URSODIOL [Suspect]
     Active Substance: URSODIOL
     Indication: Product used for unknown indication
     Dosage: UNK
     Route: 048

REACTIONS (10)
  - Cholestasis [Unknown]
  - Cholecystitis chronic [Unknown]
  - Cholelithiasis [Unknown]
  - Premature rupture of membranes [Unknown]
  - Electrolyte imbalance [Unknown]
  - Hypoalbuminaemia [Unknown]
  - Anaemia [Unknown]
  - Pregnancy [Unknown]
  - Urinary bladder polyp [Unknown]
  - Liver function test increased [Unknown]
